FAERS Safety Report 5982958-2 (Version None)
Quarter: 2008Q4

REPORT INFORMATION
  Report Type: 
  Country: None (occurrence: None)
  Receive Date: 20081125
  Receipt Date: 20080917
  Transmission Date: 20090506
  Serious: Yes (Hospitalization)
  Sender: FDA-Public Use
  Company Number: 2008MP000137

PATIENT
  Age: 61 Year
  Sex: Female
  Weight: 77.5651 kg

DRUGS (7)
  1. GLIADEL [Suspect]
     Indication: ASTROCYTOMA
     Dosage: 61.6 MG;X1;ICER
     Dates: start: 20080712
  2. TEMODAR [Concomitant]
  3. LISINOPRIL [Concomitant]
  4. HYDROCHLOROTHIAZIDE [Concomitant]
  5. KEPPRA [Concomitant]
  6. DECADRON [Concomitant]
  7. PEPCID [Concomitant]

REACTIONS (2)
  - RASH [None]
  - URINARY TRACT INFECTION [None]
